FAERS Safety Report 6471514-8 (Version None)
Quarter: 2009Q4

REPORT INFORMATION
  Report Type: 
  Country: None (occurrence: None)
  Receive Date: 20091203
  Receipt Date: 20080226
  Transmission Date: 20100525
  Serious: Yes (Hospitalization)
  Sender: FDA-Public Use
  Company Number: TR-ELI_LILLY_AND_COMPANY-TR200802006485

PATIENT
  Sex: Male
  Weight: 69 kg

DRUGS (13)
  1. HUMALOG MIX 75/25 [Suspect]
     Indication: TYPE 1 DIABETES MELLITUS
     Dosage: 16 UNITS IN THE MORNING
     Route: 058
     Dates: start: 20080101
  2. HUMALOG MIX 75/25 [Suspect]
     Dosage: 8 U, EACH EVENING
     Route: 058
     Dates: start: 20080101
  3. AVELOX [Concomitant]
     Dosage: UNK UNK, DAILY (1/D)
     Route: 048
  4. CORASPIN [Concomitant]
     Dosage: UNK UNK, 2/D
     Route: 048
  5. VASTAREL [Concomitant]
     Dosage: UNK UNK, 3/D
     Route: 048
  6. ATACAND [Concomitant]
     Dosage: UNK UNK, DAILY (1/D)
     Route: 048
  7. PLAVIX [Concomitant]
     Dosage: UNK UNK, DAILY (1/D)
     Route: 048
  8. URIKOLIZ [Concomitant]
     Dosage: UNK UNK, DAILY (1/D)
     Route: 048
  9. TRENTAL [Concomitant]
     Dosage: UNK UNK, 3/D
     Route: 048
  10. DESAL [Concomitant]
     Dosage: UNK UNK, DAILY (1/D)
     Route: 048
  11. SURGAM [Concomitant]
     Dosage: UNK UNK, 2/D
     Route: 048
  12. LIPITOR [Concomitant]
     Dosage: UNK UNK, DAILY (1/D)
     Route: 048
  13. NORVASC [Concomitant]
     Dosage: 1/2 TABLET DAILY
     Route: 048

REACTIONS (1)
  - VASCULAR GRAFT [None]
